FAERS Safety Report 6953019-0 (Version None)
Quarter: 2010Q3

REPORT INFORMATION
  Report Type: 
  Country: None (occurrence: None)
  Receive Date: 20100829
  Receipt Date: 20100520
  Transmission Date: 20110219
  Serious: No
  Sender: FDA-Public Use
  Company Number: US-ABBOTT-10P-163-0647108-00

PATIENT
  Sex: Female
  Weight: 56.75 kg

DRUGS (8)
  1. NIASPAN [Suspect]
     Indication: BLOOD CHOLESTEROL INCREASED
     Route: 048
     Dates: start: 20090501
  2. SIMVASTATIN [Concomitant]
     Indication: BLOOD CHOLESTEROL INCREASED
  3. METFORMIN [Concomitant]
     Indication: DIABETES MELLITUS
  4. RELAFEN [Concomitant]
     Indication: ARTHRALGIA
  5. HYDROCHLOROTHIAZIDE [Concomitant]
     Indication: HYPERTENSION
  6. ZANTAC [Concomitant]
     Indication: GASTROOESOPHAGEAL REFLUX DISEASE
  7. CALCIUM [Concomitant]
     Indication: MINERAL SUPPLEMENTATION
  8. ESTRATEST [Concomitant]
     Indication: HORMONE REPLACEMENT THERAPY

REACTIONS (3)
  - FLUSHING [None]
  - PRURITUS [None]
  - SKIN BURNING SENSATION [None]
